FAERS Safety Report 7412033-1 (Version None)
Quarter: 2011Q2

REPORT INFORMATION
  Report Type: 
  Country: None (occurrence: None)
  Receive Date: 20110405
  Receipt Date: 20110322
  Transmission Date: 20111010
  Serious: Yes (Death, Hospitalization)
  Sender: FDA-Public Use
  Company Number: GB-JNJFOC-20110203826

PATIENT
  Age: 81 Year
  Sex: Male

DRUGS (24)
  1. DACOGEN [Suspect]
     Indication: ACUTE MYELOID LEUKAEMIA
     Dosage: 41 MG, IN 1 DAY, INTRAVENOUS
     Route: 042
     Dates: start: 20101215, end: 20101219
  2. CHLORHEXIDINE (CHLORHEXIDINE) [Concomitant]
  3. CHLORPHENAMINE (CHLORPHENAMINE) [Concomitant]
  4. GENTAMICIN [Concomitant]
  5. ZOPICLONE (ZOPICLONE) [Concomitant]
  6. FUROSEMIDE [Concomitant]
  7. TEICOPLANIN (TEICOPLANIN) [Concomitant]
  8. AMILORIDE (AMILORIDE) [Concomitant]
  9. ORAMORPH SR [Concomitant]
  10. ACETAMINOPHEN [Concomitant]
  11. DIGOXIN [Concomitant]
  12. HYDROCORTONE [Concomitant]
  13. VORICONAZOLE [Concomitant]
  14. PRAVASTATIN [Concomitant]
  15. ENSURE PLUS (ENSURE PLUS) [Concomitant]
  16. CALOGEN (CALCITONIN, SALMON) [Concomitant]
  17. GTN (GLYCERYL TRINITRATE) [Concomitant]
  18. MIDAZOLAM HCL [Concomitant]
  19. ACYCLOVIR [Concomitant]
  20. POTASSIUM CHLORIDE [Concomitant]
  21. MORPHINE [Concomitant]
  22. OXYCODONE HCL [Concomitant]
  23. BISOPROLOL FUMARATE [Concomitant]
  24. AMBISOME [Concomitant]

REACTIONS (6)
  - NEUTROPENIC SEPSIS [None]
  - PLATELET COUNT DECREASED [None]
  - BRONCHOPULMONARY ASPERGILLOSIS [None]
  - PNEUMONIA [None]
  - WHITE BLOOD CELL COUNT DECREASED [None]
  - HAEMOGLOBIN DECREASED [None]
